FAERS Safety Report 21598495 (Version 1)
Quarter: 2022Q4

REPORT INFORMATION
  Report Type: Spontaneous
  Country: US (occurrence: US)
  Receive Date: 20221115
  Receipt Date: 20221115
  Transmission Date: 20230113
  Serious: Yes (Other)
  Sender: FDA-Public Use
  Company Number: US-002147023-NVSC2022US252444

PATIENT
  Age: 37 Year
  Sex: Female

DRUGS (8)
  1. AMPICILLIN [Suspect]
     Active Substance: AMPICILLIN
     Indication: Amniotic cavity infection
     Dosage: UNK
     Route: 042
  2. ERYTHROMYCIN [Suspect]
     Active Substance: ERYTHROMYCIN
     Indication: Antibiotic prophylaxis
     Dosage: UNK
     Route: 065
  3. ERYTHROMYCIN [Suspect]
     Active Substance: ERYTHROMYCIN
     Dosage: UNK
     Route: 048
  4. AMOXICILLIN [Suspect]
     Active Substance: AMOXICILLIN
     Indication: Antibiotic prophylaxis
     Dosage: UNK
     Route: 065
  5. CLINDAMYCIN [Suspect]
     Active Substance: CLINDAMYCIN
     Indication: Amniotic cavity infection
     Route: 065
  6. TOBRAMYCIN [Suspect]
     Active Substance: TOBRAMYCIN
     Indication: Amniotic cavity infection
     Route: 065
  7. MISOPROSTOL [Suspect]
     Active Substance: MISOPROSTOL
     Indication: Induced labour
     Dosage: UNK
     Route: 065
  8. OXYTOCIN [Suspect]
     Active Substance: OXYTOCIN
     Indication: Induced labour
     Dosage: UNK
     Route: 065

REACTIONS (2)
  - Premature delivery [Unknown]
  - Maternal exposure during pregnancy [Unknown]
